FAERS Safety Report 19630015 (Version 2)
Quarter: 2021Q4

REPORT INFORMATION
  Report Type: Spontaneous
  Country: ES (occurrence: ES)
  Receive Date: 20210728
  Receipt Date: 20211018
  Transmission Date: 20220303
  Serious: Yes (Other)
  Sender: FDA-Public Use
  Company Number: ES-BOEHRINGERINGELHEIM-2021-BI-118109

PATIENT

DRUGS (2)
  1. OFEV [Suspect]
     Active Substance: NINTEDANIB
     Indication: Fibrosis
     Dosage: NINTEDANIB 150 MG TWICE DAILY. TEMPORARILY WITHDRAWN.
     Dates: start: 2019
  2. OFEV [Suspect]
     Active Substance: NINTEDANIB
     Indication: Emphysema
     Dosage: NINTEDANIB 150 MG TWICE DAILY. REINTRODUCED.

REACTIONS (2)
  - COVID-19 [Recovered/Resolved with Sequelae]
  - Thrombocytopenia [Not Recovered/Not Resolved]
